FAERS Safety Report 6256019-1 (Version None)
Quarter: 2009Q2

REPORT INFORMATION
  Report Type: 
  Country: None (occurrence: None)
  Receive Date: 20090630
  Receipt Date: 20090630
  Transmission Date: 20091009
  Serious: Yes (Other)
  Sender: FDA-Public Use
  Company Number: None

PATIENT
  Age: 43 Year
  Sex: Female
  Weight: 77.1115 kg

DRUGS (1)
  1. ULTRAN TAB [Suspect]
     Indication: BACK PAIN
     Dosage: 200 MG 1 TO 2X/DAY PO
     Route: 048
     Dates: start: 20080102, end: 20090602

REACTIONS (8)
  - ABDOMINAL PAIN UPPER [None]
  - AMNESIA [None]
  - DEPRESSION [None]
  - DRUG TOLERANCE INCREASED [None]
  - INFLUENZA LIKE ILLNESS [None]
  - LETHARGY [None]
  - PAIN [None]
  - WITHDRAWAL SYNDROME [None]
